FAERS Safety Report 7437137-9 (Version None)
Quarter: 2011Q2

REPORT INFORMATION
  Report Type: 
  Country: None (occurrence: None)
  Receive Date: 20110426
  Receipt Date: 20110419
  Transmission Date: 20111010
  Serious: Yes (Other)
  Sender: FDA-Public Use
  Company Number: US-PERRIGO-11US003277

PATIENT
  Sex: Female
  Weight: 8.844 kg

DRUGS (3)
  1. DIPHENHYDRAMINE HCL [Suspect]
     Indication: RHINORRHOEA
  2. OMNICEF [Suspect]
     Indication: EAR INFECTION
     Dosage: UNK
     Route: 065
     Dates: start: 20110401, end: 20110413
  3. DIPHENHYDRAMINE HCL [Suspect]
     Indication: PULMONARY CONGESTION
     Dosage: UNK, ONCE DAILY
     Route: 048
     Dates: start: 20110415, end: 20110416

REACTIONS (6)
  - PAIN IN EXTREMITY [None]
  - HYPERSENSITIVITY [None]
  - RASH MACULAR [None]
  - RASH PRURITIC [None]
  - OEDEMA PERIPHERAL [None]
  - OFF LABEL USE [None]
